FAERS Safety Report 7682525-9 (Version None)
Quarter: 2011Q3

REPORT INFORMATION
  Report Type: 
  Country: None (occurrence: None)
  Receive Date: 20110815
  Receipt Date: 20110808
  Transmission Date: 20111222
  Serious: Yes (Life-Threatening, Hospitalization)
  Sender: FDA-Public Use
  Company Number: US-US-EMD SERONO, INC.-7076021

PATIENT
  Sex: Male

DRUGS (19)
  1. MEROPENEM [Concomitant]
     Dates: start: 20110512
  2. VANCOMYCIN HCL [Concomitant]
     Dates: start: 20110511
  3. PROPACETAMOL HCL [Concomitant]
  4. ZOLPIDEM TARTRATE [Concomitant]
     Dates: start: 20110311, end: 20110401
  5. SOLU-MEDROL [Concomitant]
     Dates: start: 20110504, end: 20110510
  6. FUROSEMIDE [Concomitant]
     Dates: start: 20110304, end: 20110307
  7. METOCLOPRAMIDE HYDROCHLORIDE [Concomitant]
     Dates: start: 20110308, end: 20110317
  8. DASATINIB [Suspect]
     Dates: start: 20110719
  9. CLIDAMYCIN PHOSPHATE [Concomitant]
     Dates: start: 20110509, end: 20110512
  10. CYTARABINE [Suspect]
     Indication: ACUTE LYMPHOCYTIC LEUKAEMIA
     Route: 042
     Dates: start: 20110426, end: 20110430
  11. CYTARABINE [Suspect]
     Dates: start: 20110101
  12. CEFTRIAXONE SODIUM [Concomitant]
     Dates: start: 20110227, end: 20110429
  13. IPRATROPIUM BROMIDE [Concomitant]
     Dates: start: 20110304, end: 20110308
  14. LEVOFLOXACIN [Concomitant]
     Dates: start: 20110509
  15. NOVANTRONE [Suspect]
     Indication: ACUTE LYMPHOCYTIC LEUKAEMIA
     Route: 042
     Dates: start: 20110426, end: 20110427
  16. DASATINIB [Suspect]
     Indication: ACUTE LYMPHOCYTIC LEUKAEMIA
     Route: 048
     Dates: start: 20110328, end: 20110424
  17. MEPERIDINE HCL [Concomitant]
     Dates: start: 20110225, end: 20110428
  18. CHLORPHENIRAMINE MALEATE [Concomitant]
     Dates: start: 20110326, end: 20110505
  19. URSODIOL [Concomitant]
     Dates: start: 20110331, end: 20110409

REACTIONS (3)
  - PNEUMONIA [None]
  - SEPTIC SHOCK [None]
  - FEBRILE NEUTROPENIA [None]
